FAERS Safety Report 6396078-9 (Version None)
Quarter: 2009Q4

REPORT INFORMATION
  Report Type: 
  Country: None (occurrence: None)
  Receive Date: 20091006
  Receipt Date: 20090921
  Transmission Date: 20100525
  Serious: Yes (Hospitalization)
  Sender: FDA-Public Use
  Company Number: 020538433A

PATIENT
  Sex: Female

DRUGS (1)
  1. COLGATE SPARKLING WHITE MINT ZING TOOTHPASTE [Suspect]
     Indication: DENTAL DISORDER PROPHYLAXIS
     Dosage: ORAL
     Route: 048
     Dates: start: 20090918, end: 20090921

REACTIONS (6)
  - DYSPHONIA [None]
  - DYSPNOEA [None]
  - IRRITABILITY [None]
  - LIP SWELLING [None]
  - PALATAL OEDEMA [None]
  - PHARYNGEAL OEDEMA [None]
